FAERS Safety Report 16056880 (Version 3)
Quarter: 2019Q1

REPORT INFORMATION
  Report Type: Spontaneous
  Country: TR (occurrence: TR)
  Receive Date: 20190311
  Receipt Date: 20190319
  Transmission Date: 20190418
  Serious: Yes (Death, Other)
  Sender: FDA-Public Use
  Company Number: TR-PFIZER INC-2019099936

PATIENT
  Age: 40 Year
  Sex: Female

DRUGS (3)
  1. DOPAMINE HCL [Suspect]
     Active Substance: DOPAMINE HYDROCHLORIDE
     Dosage: UNK
     Route: 042
  2. RANITIDINE. [Suspect]
     Active Substance: RANITIDINE
  3. NORADRENALINE [NOREPINEPHRINE] [Suspect]
     Active Substance: NOREPINEPHRINE
     Dosage: UNK
     Route: 042

REACTIONS (3)
  - Oxygen saturation decreased [Fatal]
  - Foetal death [Fatal]
  - Bradycardia [Fatal]
